FAERS Safety Report 17510313 (Version 2)
Quarter: 2020Q1

REPORT INFORMATION
  Report Type: Spontaneous
  Country: IN (occurrence: IN)
  Receive Date: 20200306
  Receipt Date: 20200310
  Transmission Date: 20200409
  Serious: Yes (Other)
  Sender: FDA-Public Use
  Company Number: IN-BAXTER-2020BAX004998

PATIENT
  Age: 26 Year
  Sex: Male

DRUGS (16)
  1. MESNA. [Suspect]
     Active Substance: MESNA
     Indication: EWING^S SARCOMA
     Dosage: INJ. MESNA (MERCAPTOETHANESULFONATE) 540 MG IN 5% DEXTROSE 100 ML OVER 15MIN OD; CYCLICAL
     Route: 065
  2. SALINE [Concomitant]
     Active Substance: SODIUM CHLORIDE
     Dosage: INJ. DEXAMETHASONE 8 MG WITH 100 ML/NORMAL SALINE OVER 10 MINS OD; CYCLICAL
     Route: 065
  3. DOXIL [Suspect]
     Active Substance: DOXORUBICIN HYDROCHLORIDE
     Indication: EWING^S SARCOMA
     Dosage: INJ. MESNA (MERCAPTOETHANESULFONATE) 540 MG IN 5% DEXTROSE 100 ML OVER 15 MIN OD; CYCLICAL
     Route: 058
  4. DEXAMETHASONE. [Suspect]
     Active Substance: DEXAMETHASONE
     Indication: EWING^S SARCOMA
     Dosage: INJ. DEXAMETHASONE 8 MG WITH 100 ML/NORMAL SALINE OVER 10 MINS OD; CYCLICAL
     Route: 065
  5. SALINE [Concomitant]
     Active Substance: SODIUM CHLORIDE
     Dosage: INJ. IFOSFAMIDE 3960 MG IN 500 ML NORMAL SALINE (NS) OVER 1 HOUR OD; CYCLICAL
     Route: 065
  6. IFOSFAMIDE. [Suspect]
     Active Substance: IFOSFAMIDE
     Indication: EWING^S SARCOMA
     Dosage: INJ. IFOSFAMIDE 3960 MG IN 500 ML NORMAL SALINE (NS) OVER 1 HOUR OD; CYCLICAL
     Route: 065
  7. RANITIDINE. [Concomitant]
     Active Substance: RANITIDINE
     Indication: PRODUCT USED FOR UNKNOWN INDICATION
     Dosage: INJECTION
     Route: 065
  8. SALINE [Concomitant]
     Active Substance: SODIUM CHLORIDE
     Indication: PRODUCT USED FOR UNKNOWN INDICATION
     Dosage: INJ. ETOPOSIDE 220 MG IN 500 ML NORMAL SALINE OVER 1 HOUR OD; CYCLICAL
     Route: 065
  9. APREPITANT. [Concomitant]
     Active Substance: APREPITANT
     Indication: PRODUCT USED FOR UNKNOWN INDICATION
     Route: 065
  10. PALONOSETRON. [Concomitant]
     Active Substance: PALONOSETRON HYDROCHLORIDE
     Indication: PRODUCT USED FOR UNKNOWN INDICATION
     Route: 042
  11. VINCRISTINE [Suspect]
     Active Substance: VINCRISTINE
     Indication: EWING^S SARCOMA
     Route: 042
  12. ETOPOSIDE. [Suspect]
     Active Substance: ETOPOSIDE
     Indication: EWING^S SARCOMA
     Dosage: INJ. ETOPOSIDE 220 MG IN 500 ML NORMAL SALINE OVER 1 HOUR OD; CYCLICAL?INJECTION
     Route: 065
  13. CYCLOPHOSPHAMIDE. [Suspect]
     Active Substance: CYCLOPHOSPHAMIDE
     Indication: EWING^S SARCOMA
     Dosage: 2640 MG WITH 500 ML OVER 2 HOURS; CYCLICAL
     Route: 065
  14. DEXTROSE. [Concomitant]
     Active Substance: DEXTROSE
     Indication: PRODUCT USED FOR UNKNOWN INDICATION
     Dosage: INJ. MESNA (MERCAPTOETHANESULFONATE) 540 MG IN 5% DEXTROSE 100 ML OVER 15MIN OD; CYCLICAL
     Route: 065
  15. DACTINOMYCIN [Suspect]
     Active Substance: DACTINOMYCIN
     Indication: EWING^S SARCOMA
     Dosage: CYCLICAL
     Route: 042
  16. COLISTIN [Concomitant]
     Active Substance: COLISTIN
     Indication: PRODUCT USED FOR UNKNOWN INDICATION
     Route: 058

REACTIONS (4)
  - Alopecia [Unknown]
  - Leukopenia [Unknown]
  - Thrombocytopenia [Unknown]
  - Anaemia [Unknown]
